FAERS Safety Report 11253187 (Version 2)
Quarter: 2015Q3

REPORT INFORMATION
  Report Type: Spontaneous
  Country: BR (occurrence: BR)
  Receive Date: 20150709
  Receipt Date: 20150716
  Transmission Date: 20151125
  Serious: Yes (Hospitalization, Other)
  Sender: FDA-Public Use
  Company Number: BR-ASTRAZENECA-2015SE64926

PATIENT
  Age: 726 Month
  Sex: Female
  Weight: 85 kg

DRUGS (9)
  1. BROMAZEPAM [Concomitant]
     Active Substance: BROMAZEPAM
     Indication: ANXIETY
     Dosage: DAILY
     Route: 048
     Dates: start: 2011
  2. GLIFAGE XR [Suspect]
     Active Substance: METFORMIN HYDROCHLORIDE
     Indication: DIABETES MELLITUS
     Route: 048
     Dates: start: 2010
  3. BUP [Concomitant]
     Active Substance: BUPROPION HYDROCHLORIDE
     Indication: ANXIETY
     Dosage: DAILY
     Route: 048
     Dates: start: 2014
  4. RASILEZ [Concomitant]
     Active Substance: ALISKIREN
     Indication: RENAL FAILURE
     Dosage: DAILY
     Route: 048
     Dates: start: 2010
  5. ESCITALOPRAM [Concomitant]
     Active Substance: ESCITALOPRAM OXALATE
     Indication: ANXIETY
     Dosage: DAILY
     Route: 048
     Dates: start: 2013
  6. AMYTRIL [Concomitant]
     Active Substance: AMITRIPTYLINE HYDROCHLORIDE
     Indication: ANXIETY
     Dosage: DAILY
     Route: 048
     Dates: start: 2013
  7. SYMBICORT [Suspect]
     Active Substance: BUDESONIDE\FORMOTEROL FUMARATE DIHYDRATE
     Indication: EMPHYSEMA
     Dosage: 320/9MCG, AS REQUIRED
     Route: 055
     Dates: start: 201505
  8. ARTROLIVE [Concomitant]
     Active Substance: CHONDROITIN SULFATE (BOVINE)\GLUCOSAMINE SULFATE
     Indication: OSTEOARTHRITIS
     Dosage: DAILY
     Route: 048
     Dates: start: 2012
  9. ENALAPRIL [Concomitant]
     Active Substance: ENALAPRIL
     Indication: RENAL FAILURE
     Dosage: DAILY
     Route: 048
     Dates: start: 201505

REACTIONS (4)
  - Haematoma [Recovered/Resolved]
  - Dyspnoea [Not Recovered/Not Resolved]
  - Back pain [Recovered/Resolved]
  - Fall [Recovered/Resolved with Sequelae]

NARRATIVE: CASE EVENT DATE: 201505
